FAERS Safety Report 9843292 (Version 3)
Quarter: 2014Q1

REPORT INFORMATION
  Report Type: Report from Study
  Country: FR (occurrence: FR)
  Receive Date: 20140125
  Receipt Date: 20140213
  Transmission Date: 20141002
  Serious: Yes (Death, Other)
  Sender: FDA-Public Use
  Company Number: FR-ROCHE-1274148

PATIENT
  Age: 59 Year
  Sex: Female
  Weight: 63 kg

DRUGS (3)
  1. ZELBORAF [Suspect]
     Indication: MALIGNANT MELANOMA
     Dosage: 4 DF IN THE MORNING AND 4 DF IN THE EVENING
     Route: 048
     Dates: start: 20130824
  2. ZELBORAF [Suspect]
     Dosage: 3 DF IN THE MORNING AND 3 DF IN THE EVENING
     Route: 048
  3. INEXIUM [Concomitant]
     Indication: GASTRIC PH DECREASED
     Route: 048
     Dates: start: 20130613

REACTIONS (5)
  - Malignant neoplasm progression [Fatal]
  - Skin plaque [Unknown]
  - Local swelling [Unknown]
  - Pruritus [Not Recovered/Not Resolved]
  - Erythema [Recovering/Resolving]
